FAERS Safety Report 4707018-X (Version None)
Quarter: 2005Q3

REPORT INFORMATION
  Report Type: 
  Country: None (occurrence: None)
  Receive Date: 20050705
  Receipt Date: 20050705
  Transmission Date: 20060218
  Serious: Yes (Other)
  Sender: FDA-Public Use
  Company Number: None

PATIENT
  Sex: Male

DRUGS (4)
  1. OXALIPLATIN [Suspect]
     Dosage: 85 MG/M2 IV DAY 1
     Dates: start: 20050627
  2. LEUCOVORIN [Suspect]
     Dosage: 400 MG/M2 IV DAY 1
  3. FLUOROURACIL [Suspect]
     Dosage: 400 MG/M2 IV BOLUS DAY 1
     Route: 040
  4. FLUOROURACIL [Suspect]
     Dosage: 2400 MG/M2 CIV OVER 45 HOURS ON DAYS 1 AND 2

REACTIONS (4)
  - DIVERTICULUM INTESTINAL [None]
  - HAEMATOCHEZIA [None]
  - HAEMORRHAGE [None]
  - INTERNATIONAL NORMALISED RATIO INCREASED [None]
